FAERS Safety Report 7908751-9 (Version None)
Quarter: 2011Q4

REPORT INFORMATION
  Report Type: 
  Country: None (occurrence: None)
  Receive Date: 20111111
  Receipt Date: 20111108
  Transmission Date: 20120403
  Serious: Yes (Other)
  Sender: FDA-Public Use
  Company Number: US-PFIZER INC-2011143822

PATIENT
  Sex: Male

DRUGS (4)
  1. CEPHALEXIN [Concomitant]
     Indication: ANTIBIOTIC THERAPY
     Dosage: UNK
     Dates: start: 20070101, end: 20110101
  2. CHANTIX [Suspect]
     Dosage: STARTER PACK AND CONTINUING PACK, UNK
     Dates: start: 20100224, end: 20100601
  3. SULFAMETHOXAZOLE AND TRIMETHOPRIM [Concomitant]
     Indication: ANTIBIOTIC THERAPY
     Dosage: UNK
     Dates: start: 20070101, end: 20100101
  4. CHANTIX [Suspect]
     Indication: SMOKING CESSATION THERAPY
     Dosage: 1 MG, 2X/DAY
     Dates: start: 20080923, end: 20090501

REACTIONS (4)
  - SUICIDE ATTEMPT [None]
  - DEPRESSION [None]
  - INTENTIONAL OVERDOSE [None]
  - NIGHTMARE [None]
